FAERS Safety Report 9881508 (Version 1)
Quarter: 2014Q1

REPORT INFORMATION
  Report Type: Spontaneous
  Country: US (occurrence: US)
  Receive Date: 20140207
  Receipt Date: 20140207
  Transmission Date: 20141002
  Serious: No
  Sender: FDA-Public Use
  Company Number: US-BAYER-2014-018500

PATIENT
  Age: 83 Year
  Sex: Female
  Weight: 66 kg

DRUGS (1)
  1. ALEVE TABLET [Suspect]
     Dosage: 1 DF, QD
     Route: 048
     Dates: start: 20140126, end: 20140131

REACTIONS (2)
  - Swelling face [Not Recovered/Not Resolved]
  - Intentional drug misuse [None]
